FAERS Safety Report 23662568 (Version 1)
Quarter: 2024Q1

REPORT INFORMATION
  Report Type: Spontaneous
  Country: AT (occurrence: AT)
  Receive Date: 20240322
  Receipt Date: 20240322
  Transmission Date: 20240409
  Serious: Yes (Other)
  Sender: FDA-Public Use
  Company Number: AT-JNJFOC-20170925924

PATIENT
  Age: 42 Year
  Sex: Male
  Weight: 89 kg

DRUGS (30)
  1. LYRICA [Suspect]
     Active Substance: PREGABALIN
     Indication: Sleep disorder
     Dosage: 300 MG, UNK
     Route: 065
     Dates: start: 20150317, end: 20150317
  2. LYRICA [Suspect]
     Active Substance: PREGABALIN
     Dosage: 375 MG, UNK
     Route: 065
     Dates: start: 20150318, end: 20150318
  3. LYRICA [Suspect]
     Active Substance: PREGABALIN
     Dosage: 450 MG, QD
     Route: 065
     Dates: start: 20150319
  4. MIRTAZAPINE [Suspect]
     Active Substance: MIRTAZAPINE
     Indication: Sleep disorder
     Dosage: 7.5 MG, QD
     Route: 065
     Dates: start: 20150409, end: 20150416
  5. MIRTAZAPINE [Suspect]
     Active Substance: MIRTAZAPINE
     Dosage: UNK,QD
     Route: 065
     Dates: start: 2015, end: 2015
  6. TRAZODONE HYDROCHLORIDE [Suspect]
     Active Substance: TRAZODONE HYDROCHLORIDE
     Indication: Sleep disorder
     Dosage: 450 MG, QD
     Route: 065
     Dates: start: 2015, end: 20150316
  7. TRAZODONE HYDROCHLORIDE [Suspect]
     Active Substance: TRAZODONE HYDROCHLORIDE
     Dosage: 300 MG, QD
     Route: 065
     Dates: start: 20150317
  8. ZOLPIDEM TARTRATE [Suspect]
     Active Substance: ZOLPIDEM TARTRATE
     Indication: Sleep disorder
     Dosage: 10 MG, QD
     Route: 065
     Dates: start: 20150317, end: 20150322
  9. ZOLPIDEM TARTRATE [Suspect]
     Active Substance: ZOLPIDEM TARTRATE
     Dosage: 20 MG, QD
     Route: 065
     Dates: start: 20150323, end: 20150329
  10. TRANYLCYPROMINE SULFATE\TRIFLUOPERAZINE HYDROCHLORIDE [Suspect]
     Active Substance: TRANYLCYPROMINE SULFATE\TRIFLUOPERAZINE HYDROCHLORIDE
     Indication: Sleep disorder
     Dosage: 10 MILLIGRAM, QD
     Route: 065
     Dates: start: 20150323, end: 20150406
  11. TRANYLCYPROMINE SULFATE\TRIFLUOPERAZINE HYDROCHLORIDE [Suspect]
     Active Substance: TRANYLCYPROMINE SULFATE\TRIFLUOPERAZINE HYDROCHLORIDE
     Dosage: 20 MILLIGRAM, QD
     Route: 065
     Dates: start: 20150407, end: 20150413
  12. TRANYLCYPROMINE SULFATE\TRIFLUOPERAZINE HYDROCHLORIDE [Suspect]
     Active Substance: TRANYLCYPROMINE SULFATE\TRIFLUOPERAZINE HYDROCHLORIDE
     Dosage: 30 MG, QD
     Route: 065
     Dates: start: 20150414
  13. SEROQUEL [Suspect]
     Active Substance: QUETIAPINE FUMARATE
     Indication: Sleep disorder
     Dosage: 100 MG, QD
     Route: 065
     Dates: start: 20150317, end: 20150317
  14. SEROQUEL [Suspect]
     Active Substance: QUETIAPINE FUMARATE
     Dosage: 200 MG, QD
     Route: 065
     Dates: start: 20150318
  15. CHLORAL HYDRATE [Suspect]
     Active Substance: CHLORAL HYDRATE
     Indication: Sleep disorder
     Dosage: 100 MG, QD
     Route: 065
     Dates: start: 20150320, end: 20150320
  16. CHLORAL HYDRATE [Suspect]
     Active Substance: CHLORAL HYDRATE
     Dosage: 300 MG, QD
     Route: 065
     Dates: start: 20150321, end: 20150321
  17. CHLORAL HYDRATE [Suspect]
     Active Substance: CHLORAL HYDRATE
     Dosage: 100 MG, QD
     Route: 065
     Dates: start: 20150322, end: 20150322
  18. PANTOPRAZOLE SODIUM [Concomitant]
     Active Substance: PANTOPRAZOLE SODIUM
     Indication: Sleep disorder
     Dosage: 40 MG, QD
     Route: 065
     Dates: start: 2015
  19. MORPHINE SULFATE [Concomitant]
     Active Substance: MORPHINE SULFATE
     Indication: Sleep disorder
     Dosage: 480 MG, QD  SINCE AUTUMN
     Route: 065
     Dates: start: 2014
  20. MOCLOBEMIDE [Concomitant]
     Active Substance: MOCLOBEMIDE
     Indication: Product used for unknown indication
     Dosage: 900 MG, QD
     Route: 065
     Dates: start: 2015, end: 20150322
  21. FERROUS SULFATE [Concomitant]
     Active Substance: FERROUS SULFATE
     Indication: Sleep disorder
     Dosage: 1 DOSAGE FORM, QD
     Route: 065
     Dates: start: 2015
  22. NICORETTE [Concomitant]
     Active Substance: NICOTINE
     Indication: Product used for unknown indication
     Dosage: 1 DOSAGE FORM RANSDERMALES PFLASTER 25 MG/16H
     Route: 065
     Dates: start: 20150321
  23. Dominal [Concomitant]
     Dosage: 80 MILLIGRAM
     Route: 065
     Dates: start: 20150323, end: 20150323
  24. Dominal [Concomitant]
     Dosage: 80 MILLIGRAM
     Route: 065
     Dates: start: 20150319, end: 20150319
  25. Dominal [Concomitant]
     Dosage: 80 MILLIGRAM
     Route: 065
     Dates: start: 20150413, end: 20150413
  26. Dominal [Concomitant]
     Dosage: 80 MILLIGRAM
     Route: 065
     Dates: start: 20150409, end: 20150410
  27. Dominal [Concomitant]
     Dosage: 160 MILLIGRAM
     Route: 065
     Dates: start: 20150408, end: 20150408
  28. Dominal [Concomitant]
     Dosage: 80 MILLIGRAM
     Route: 065
     Dates: start: 20150331, end: 20150331
  29. Dominal [Concomitant]
     Dosage: 80 MILLIGRAM
     Route: 065
     Dates: start: 20150404, end: 20150404
  30. OXAZEPAM [Concomitant]
     Active Substance: OXAZEPAM
     Dosage: 125 MILLIGRAM
     Route: 065
     Dates: start: 2015, end: 20150316

REACTIONS (7)
  - Nervousness [Unknown]
  - Pollakiuria [Unknown]
  - Disorientation [Unknown]
  - Depressed mood [Unknown]
  - Restlessness [Unknown]
  - Oedema peripheral [Recovered/Resolved]
  - Confusional state [Recovered/Resolved]

NARRATIVE: CASE EVENT DATE: 20150101
